FAERS Safety Report 4522087-8 (Version None)
Quarter: 2004Q4

REPORT INFORMATION
  Report Type: 
  Country: None (occurrence: None)
  Receive Date: 20041209
  Receipt Date: 20041203
  Transmission Date: 20050328
  Serious: Yes (Hospitalization)
  Sender: FDA-Public Use
  Company Number: SE-MERCK-0412SWE00007

PATIENT
  Age: 66 Year
  Sex: Female

DRUGS (5)
  1. VIOXX [Suspect]
     Indication: LOCALISED OSTEOARTHRITIS
     Route: 048
     Dates: start: 20020101, end: 20040101
  2. ACETAMINOPHEN [Concomitant]
     Route: 065
  3. GLUCOSAMINE [Concomitant]
     Route: 065
  4. ASPIRIN AND DIPYRIDAMOLE [Concomitant]
     Indication: TRANSIENT ISCHAEMIC ATTACK
     Route: 065
  5. ZOCOR [Concomitant]
     Route: 065

REACTIONS (2)
  - PARALYSIS [None]
  - TRANSIENT ISCHAEMIC ATTACK [None]
